FAERS Safety Report 5487719-9 (Version None)
Quarter: 2007Q4

REPORT INFORMATION
  Report Type: 
  Country: None (occurrence: None)
  Receive Date: 20071015
  Receipt Date: 20071015
  Transmission Date: 20080405
  Serious: Yes (Other)
  Sender: FDA-Public Use
  Company Number: None

PATIENT
  Sex: Male

DRUGS (2)
  1. CYCLOPENTOLATE 1% SOLN 17478-100-20 [Suspect]
     Indication: CATARACT OPERATION
     Dates: start: 20070924, end: 20070924
  2. PHENYLEPHRINE 2.5% SOLN 17478-205-10 [Suspect]

REACTIONS (1)
  - TOXIC ANTERIOR SEGMENT SYNDROME [None]
